FAERS Safety Report 6153495-X (Version None)
Quarter: 2009Q2

REPORT INFORMATION
  Report Type: 
  Country: None (occurrence: None)
  Receive Date: 20090409
  Receipt Date: 20090409
  Transmission Date: 20091009
  Serious: Yes (Other)
  Sender: FDA-Public Use
  Company Number: None

PATIENT
  Age: 76 Year
  Sex: Female
  Weight: 53.0709 kg

DRUGS (3)
  1. KAPIDEX [Suspect]
  2. PREVACID [Suspect]
  3. NEXIUM [Suspect]

REACTIONS (6)
  - CONSTIPATION [None]
  - DIARRHOEA [None]
  - ERYTHEMA [None]
  - PRURITUS [None]
  - RASH MACULAR [None]
  - URTICARIA [None]
